FAERS Safety Report 6134754-3 (Version None)
Quarter: 2009Q1

REPORT INFORMATION
  Report Type: 
  Country: None (occurrence: None)
  Receive Date: 20090327
  Receipt Date: 20090316
  Transmission Date: 20090719
  Serious: Yes (Hospitalization, Other)
  Sender: FDA-Public Use
  Company Number: US-ROCHE-592576

PATIENT
  Sex: Female
  Weight: 81.6 kg

DRUGS (2)
  1. CAPECITABINE [Suspect]
     Indication: BREAST CANCER
     Route: 048
     Dates: start: 20080719, end: 20090201
  2. HERCEPTIN [Concomitant]

REACTIONS (5)
  - ARTHRITIS BACTERIAL [None]
  - BREAST CANCER [None]
  - DRUG INEFFECTIVE [None]
  - PALMAR-PLANTAR ERYTHRODYSAESTHESIA SYNDROME [None]
  - THROMBOSIS [None]
